FAERS Safety Report 24463123 (Version 1)
Quarter: 2024Q4

REPORT INFORMATION
  Report Type: Report from Study
  Country: US (occurrence: US)
  Receive Date: 20241018
  Receipt Date: 20241018
  Transmission Date: 20250115
  Serious: No
  Sender: ROCHE
  Company Number: US-ROCHE-2928428

PATIENT
  Age: 9 Year
  Sex: Male
  Weight: 20.87 kg

DRUGS (11)
  1. XOLAIR [Suspect]
     Active Substance: OMALIZUMAB
     Indication: Vernal keratoconjunctivitis
     Dosage: 150 MG/ML
     Route: 058
  2. MONTELUKAST [Concomitant]
     Active Substance: MONTELUKAST
     Dosage: 5 MG ORAL EVERYDAY AT BEDTIME
     Route: 048
  3. AUVI-Q [Concomitant]
     Active Substance: EPINEPHRINE
     Dosage: ADMINISTER 1 UNIT INJECTION IF TROUBLE BREATHING.
  4. PREDNISOLONE [Concomitant]
     Active Substance: PREDNISOLONE
     Dosage: 15MG/5ML
     Route: 048
  5. LOTEMAX [Concomitant]
     Active Substance: LOTEPREDNOL ETABONATE
     Route: 047
  6. RESTASIS [Concomitant]
     Active Substance: CYCLOSPORINE
     Route: 047
  7. MOXIFLOXACIN [Concomitant]
     Active Substance: MOXIFLOXACIN
     Route: 047
  8. CETIRIZINE HYDROCHLORIDE [Concomitant]
     Active Substance: CETIRIZINE HYDROCHLORIDE
     Dosage: 5MG/5ML ORAL SOLUTION
     Route: 048
  9. TRIAMCINOLONE [Concomitant]
     Active Substance: TRIAMCINOLONE
     Route: 061
  10. PATADAY [Concomitant]
     Active Substance: OLOPATADINE HYDROCHLORIDE
     Route: 047
  11. BENADRYL [Concomitant]
     Active Substance: DIPHENHYDRAMINE HYDROCHLORIDE
     Route: 048

REACTIONS (2)
  - Off label use [Unknown]
  - No adverse event [Unknown]
